FAERS Safety Report 15192493 (Version 1)
Quarter: 2018Q3

REPORT INFORMATION
  Report Type: Spontaneous
  Country: TW (occurrence: TW)
  Receive Date: 20180725
  Receipt Date: 20180725
  Transmission Date: 20181010
  Serious: Yes (Hospitalization)
  Sender: FDA-Public Use
  Company Number: TW-AMGEN-TWNSP2018099894

PATIENT
  Age: 60 Year
  Sex: Male

DRUGS (6)
  1. WEICHILIN [Concomitant]
     Dosage: 1 DF, BID
  2. ENBREL [Suspect]
     Active Substance: ETANERCEPT
     Indication: ANKYLOSING SPONDYLITIS
     Dosage: 25 MG, CYCLIC (Q5D)
     Route: 058
     Dates: start: 20170303, end: 20180709
  3. SALAZINE [Concomitant]
     Active Substance: SULFASALAZINE
     Dosage: 500 MG, BID
  4. CELEBREX [Concomitant]
     Active Substance: CELECOXIB
     Dosage: 200 MG, QD
  5. RIVOTRIL [Concomitant]
     Active Substance: CLONAZEPAM
     Dosage: 2 MG, BID
  6. DOLAN [Concomitant]
     Active Substance: ACETAMINOPHEN\ORPHENADRINE CITRATE
     Dosage: 1 DF [ORPHENADRINE CITRATE 450MG]/ [PARACETAMOL 35MG], BID

REACTIONS (3)
  - Product use issue [Unknown]
  - Condition aggravated [Recovering/Resolving]
  - Osteoarthritis [Recovering/Resolving]

NARRATIVE: CASE EVENT DATE: 20170303
